FAERS Safety Report 16463017 (Version 1)
Quarter: 2019Q2

REPORT INFORMATION
  Report Type: Spontaneous
  Country: CN (occurrence: CN)
  Receive Date: 20190621
  Receipt Date: 20190621
  Transmission Date: 20190711
  Serious: Yes (Other)
  Sender: FDA-Public Use
  Company Number: CN-ROCHE-2338092

PATIENT
  Age: 48 Year
  Sex: Female

DRUGS (3)
  1. TRASTUZUMAB. [Suspect]
     Active Substance: TRASTUZUMAB
     Indication: GALLBLADDER CANCER METASTATIC
     Route: 042
     Dates: start: 20160306
  2. TRASTUZUMAB. [Suspect]
     Active Substance: TRASTUZUMAB
     Route: 042
     Dates: end: 20160404
  3. LAPATINIB [Suspect]
     Active Substance: LAPATINIB
     Indication: GALLBLADDER CANCER METASTATIC
     Dosage: IN 21-DAY TREATMENT CYCLES
     Route: 048
     Dates: start: 20160306

REACTIONS (3)
  - Fatigue [Unknown]
  - Blood bilirubin increased [Unknown]
  - Rash [Unknown]
